FAERS Safety Report 9486568 (Version 1)
Quarter: 2013Q3

REPORT INFORMATION
  Report Type: Spontaneous
  Country: GB (occurrence: None)
  Receive Date: 20130823
  Receipt Date: 20130823
  Transmission Date: 20140515
  Serious: Yes (Other)
  Sender: FDA-Public Use
  Company Number: GER/UKI/13/0034143

PATIENT
  Age: 34 Year
  Sex: Female
  Weight: 46 kg

DRUGS (5)
  1. OMEPRAZOLE [Suspect]
     Indication: PRODUCT USED FOR UNKNOWN INDICATION
     Dates: start: 20130304
  2. BETAMETHASONE [Concomitant]
  3. COLCHICINE [Concomitant]
  4. MARVELON [Concomitant]
  5. MEBEVERINE [Concomitant]

REACTIONS (4)
  - Myalgia [None]
  - Paraesthesia [None]
  - Arthralgia [None]
  - Paraesthesia [None]
